FAERS Safety Report 21086792 (Version 5)
Quarter: 2022Q3

REPORT INFORMATION
  Report Type: Spontaneous
  Country: IE (occurrence: IE)
  Receive Date: 20220715
  Receipt Date: 20220920
  Transmission Date: 20221027
  Serious: No
  Sender: FDA-Public Use
  Company Number: IE-PFIZER INC-PV202200011170

PATIENT
  Age: 43 Year
  Sex: Male

DRUGS (1)
  1. GENOTROPIN [Suspect]
     Active Substance: SOMATROPIN
     Indication: Growth hormone deficiency
     Dosage: 0.2 MG

REACTIONS (3)
  - Contusion [Unknown]
  - Device issue [Unknown]
  - Product dose omission issue [Unknown]
